FAERS Safety Report 10021409 (Version 1)
Quarter: 2014Q1

REPORT INFORMATION
  Report Type: Spontaneous
  Country: US (occurrence: None)
  Receive Date: 20140318
  Receipt Date: 20140318
  Transmission Date: 20141002
  Serious: Yes (Other)
  Sender: FDA-Public Use
  Company Number: None

PATIENT
  Age: 55 Year
  Sex: Male
  Weight: 63.5 kg

DRUGS (1)
  1. ADVIL PM [Suspect]
     Indication: CIRCADIAN RHYTHM SLEEP DISORDER
     Dosage: 2 PILLS?AT BEDTIME ?TAKEN BY MOUTH
     Route: 048
     Dates: start: 20131216, end: 20131217

REACTIONS (3)
  - Drug ineffective [None]
  - Vision blurred [None]
  - Insomnia [None]
